FAERS Safety Report 14875982 (Version 1)
Quarter: 2018Q2

REPORT INFORMATION
  Report Type: Spontaneous
  Country: CN (occurrence: CN)
  Receive Date: 20180510
  Receipt Date: 20180510
  Transmission Date: 20180711
  Serious: Yes (Disabling)
  Sender: FDA-Public Use
  Company Number: PHHY2018CN004019

PATIENT
  Age: 41 Year
  Sex: Female
  Weight: 60 kg

DRUGS (3)
  1. TEGRETOL [Suspect]
     Active Substance: CARBAMAZEPINE
     Indication: TRIGEMINAL NEURALGIA
     Dosage: 1 DF, QD
     Route: 048
     Dates: start: 20180205, end: 20180226
  2. TEGRETOL [Suspect]
     Active Substance: CARBAMAZEPINE
     Dosage: 1 DF, BID
     Route: 048
     Dates: start: 20180227, end: 20180228
  3. MECOBALAMIN [Suspect]
     Active Substance: METHYLCOBALAMIN
     Indication: TRIGEMINAL NEURALGIA
     Dosage: 1 DF, TID
     Route: 048
     Dates: start: 20180227, end: 20180228

REACTIONS (4)
  - Hypoaesthesia oral [Recovering/Resolving]
  - Rash [Recovering/Resolving]
  - Oedema [Recovering/Resolving]
  - Pruritus [Recovering/Resolving]

NARRATIVE: CASE EVENT DATE: 20180301
